FAERS Safety Report 4358273-X (Version None)
Quarter: 2004Q2

REPORT INFORMATION
  Report Type: 
  Country: None (occurrence: None)
  Receive Date: 20040511
  Receipt Date: 20040429
  Transmission Date: 20050107
  Serious: Yes (Other)
  Sender: FDA-Public Use
  Company Number: 2004029289

PATIENT
  Age: 48 Year
  Sex: Female
  Weight: 99.7913 kg

DRUGS (7)
  1. LIPITOR [Suspect]
     Indication: BLOOD CHOLESTEROL INCREASED
     Dosage: 20 MG (1 IN 1 D), ORAL
     Route: 048
     Dates: end: 20030501
  2. TOCOPHEROL CONCENTRATE CAP [Concomitant]
  3. ASCORBIC ACID [Concomitant]
  4. FEXOFENADINE HYDROCHLORIDE [Concomitant]
  5. DICLOFENAC [Concomitant]
  6. LISINOPRIL [Concomitant]
  7. ASPIRIN [Concomitant]

REACTIONS (4)
  - CHOLELITHIASIS [None]
  - HEPATIC CIRRHOSIS [None]
  - HEPATIC STEATOSIS [None]
  - HEPATITIS [None]
